FAERS Safety Report 16280748 (Version 1)
Quarter: 2019Q2

REPORT INFORMATION
  Report Type: Spontaneous
  Country: US (occurrence: US)
  Receive Date: 20190507
  Receipt Date: 20190507
  Transmission Date: 20190711
  Serious: No
  Sender: FDA-Public Use
  Company Number: US-BAYER-2019-090502

PATIENT
  Sex: Female

DRUGS (3)
  1. MIRALAX [Suspect]
     Active Substance: POLYETHYLENE GLYCOL 3350
     Dosage: UNK
     Route: 048
     Dates: start: 2019
  2. LINZESS [Concomitant]
     Active Substance: LINACLOTIDE
  3. MILK OF MAGNESIA ORIGINAL [Concomitant]
     Active Substance: MAGNESIUM HYDROXIDE
     Dosage: 45 ML, QD
     Dates: start: 2018

REACTIONS (4)
  - Pain [Unknown]
  - Therapeutic product effect incomplete [Unknown]
  - Therapeutic response unexpected [Unknown]
  - Gastrointestinal motility disorder [Unknown]
